FAERS Safety Report 7531814-7 (Version None)
Quarter: 2011Q2

REPORT INFORMATION
  Report Type: 
  Country: None (occurrence: None)
  Receive Date: 20110608
  Receipt Date: 20110531
  Transmission Date: 20111010
  Serious: Yes (Hospitalization)
  Sender: FDA-Public Use
  Company Number: JP-SANOFI-AVENTIS-2010SA059956

PATIENT
  Age: 75 Year
  Sex: Male

DRUGS (22)
  1. MUCOSTA [Concomitant]
     Route: 048
     Dates: start: 20090430, end: 20090610
  2. ALL OTHER THERAPEUTIC PRODUCTS [Concomitant]
     Indication: ILEUS
     Route: 041
     Dates: start: 20091125
  3. SCOPOLAMINE [Concomitant]
     Indication: ABDOMINAL PAIN UPPER
     Route: 042
     Dates: start: 20091118, end: 20091118
  4. LEUCOVORIN CALCIUM [Concomitant]
     Indication: COLON CANCER
     Route: 042
     Dates: start: 20090417, end: 20090828
  5. CYTOTEC [Concomitant]
     Indication: GASTRITIS PROPHYLAXIS
     Route: 048
     Dates: start: 20090611
  6. OXINORM [Concomitant]
     Indication: CANCER PAIN
     Route: 048
     Dates: start: 20090721
  7. ELECTROLYTE SOLUTIONS [Concomitant]
     Route: 042
     Dates: start: 20091114, end: 20091114
  8. DEXAMETHASONE SODIUM PHOSPHATE [Concomitant]
     Indication: PREMEDICATION
     Route: 041
     Dates: start: 20090417, end: 20090828
  9. VOLTAREN [Concomitant]
     Indication: CANCER PAIN
     Route: 048
     Dates: start: 20090611
  10. OXYCONTIN [Concomitant]
     Indication: CANCER PAIN
     Route: 048
     Dates: start: 20090718
  11. PROCHLORPERAZINE [Concomitant]
     Indication: PROPHYLAXIS
     Route: 048
     Dates: start: 20090818
  12. BERIZYM [Concomitant]
     Indication: ABDOMINAL PAIN UPPER
     Route: 048
     Dates: start: 20091118, end: 20091118
  13. ONDANSETRON [Concomitant]
     Indication: PROPHYLAXIS
     Route: 048
     Dates: start: 20090622
  14. BETAMETHASONE [Concomitant]
     Indication: PROPHYLAXIS
     Route: 048
     Dates: start: 20090808
  15. ELECTROLYTE SOLUTIONS [Concomitant]
     Indication: NUTRITIONAL SUPPORT
     Route: 042
     Dates: start: 20091111, end: 20091111
  16. FLUOROURACIL [Suspect]
     Indication: COLON CANCER
     Dosage: DOSE 645MG/3880MG
     Route: 040
     Dates: start: 20090417, end: 20090828
  17. LOXONIN [Concomitant]
     Indication: CANCER PAIN
     Route: 048
     Dates: start: 20090403, end: 20090610
  18. AMINO ACIDS NOS/ELECTROLYTES NOS/MALIC ACID [Concomitant]
     Indication: NUTRITIONAL SUPPORT
     Route: 042
     Dates: start: 20090829, end: 20091109
  19. OXALIPLATIN [Suspect]
     Indication: COLON CANCER
     Dosage: RECEIVED 135 MG/ BODY (90.6 MG/M2)
     Route: 041
     Dates: start: 20090417, end: 20090828
  20. ONDANSETRON [Concomitant]
     Indication: PREMEDICATION
     Route: 041
     Dates: start: 20090417, end: 20090828
  21. FAMOTIDINE [Concomitant]
     Indication: GASTRITIS PROPHYLAXIS
     Route: 048
     Dates: start: 20090611
  22. LOPERAMIDE HCL [Concomitant]
     Indication: PROPHYLAXIS AGAINST DIARRHOEA
     Route: 048
     Dates: start: 20090516

REACTIONS (3)
  - ABDOMINAL PAIN [None]
  - ILEUS [None]
  - SMALL INTESTINE ULCER [None]
